FAERS Safety Report 5658054-0 (Version None)
Quarter: 2008Q1

REPORT INFORMATION
  Report Type: 
  Country: None (occurrence: None)
  Receive Date: 20080310
  Receipt Date: 20061213
  Transmission Date: 20080703
  Serious: No
  Sender: FDA-Public Use
  Company Number: US-BAYER-200615003BCC

PATIENT
  Age: 37 Year
  Sex: Male
  Weight: 82 kg

DRUGS (3)
  1. ALEVE [Suspect]
     Indication: INFLUENZA
     Dosage: TOTAL DAILY DOSE: 1980 MG  UNIT DOSE: 220 MG
     Route: 048
     Dates: start: 20061212
  2. TAMIFLU [Concomitant]
  3. TYLENOL FLU [Concomitant]

REACTIONS (1)
  - NAUSEA [None]
